FAERS Safety Report 13015806 (Version 3)
Quarter: 2017Q1

REPORT INFORMATION
  Report Type: Report from Study
  Country: CA (occurrence: CA)
  Receive Date: 20161212
  Receipt Date: 20170103
  Transmission Date: 20170428
  Serious: Yes (Hospitalization)
  Sender: FDA-Public Use
  Company Number: CA-ROCHE-1864590

PATIENT
  Age: 65 Year
  Sex: Male
  Weight: 70 kg

DRUGS (19)
  1. CELECOXIB. [Concomitant]
     Active Substance: CELECOXIB
     Indication: CHEST PAIN
  2. CELECOXIB. [Concomitant]
     Active Substance: CELECOXIB
     Indication: AXILLARY PAIN
     Route: 065
     Dates: start: 20160812
  3. GRANISETRON [Concomitant]
     Active Substance: GRANISETRON
     Route: 065
     Dates: start: 20160915
  4. MAXERAN [Concomitant]
     Active Substance: METOCLOPRAMIDE HYDROCHLORIDE
     Indication: NAUSEA
     Route: 065
     Dates: start: 20161029, end: 20161031
  5. DIPHENHYDRAMINE. [Concomitant]
     Active Substance: DIPHENHYDRAMINE
     Route: 065
     Dates: start: 20160915
  6. PROCHLORPERAZINE. [Concomitant]
     Active Substance: PROCHLORPERAZINE
     Indication: NAUSEA
     Route: 065
     Dates: start: 20160918
  7. ATEZOLIZUMAB [Suspect]
     Active Substance: ATEZOLIZUMAB
     Indication: NON-SMALL CELL LUNG CANCER STAGE IV
     Dosage: DATE OF MOST RECENT DOSE PRIOR TO THE EVENT ONSET: 17/NOV/2016
     Route: 042
     Dates: start: 20160915
  8. HYDROMORPH CONTIN [Concomitant]
     Active Substance: HYDROMORPHONE
     Indication: CHEST PAIN
  9. LOVENOX [Concomitant]
     Active Substance: ENOXAPARIN SODIUM
     Indication: THROMBOSIS PROPHYLAXIS
     Route: 065
     Dates: start: 20161203, end: 20161213
  10. FLAGYL [Concomitant]
     Active Substance: METRONIDAZOLE\METRONIDAZOLE HYDROCHLORIDE
     Indication: DIARRHOEA
     Route: 065
     Dates: start: 20161204, end: 20161207
  11. HYDROMORPH CONTIN [Concomitant]
     Active Substance: HYDROMORPHONE
     Indication: AXILLARY PAIN
     Route: 065
     Dates: start: 20160812
  12. PACLITAXEL. [Suspect]
     Active Substance: PACLITAXEL
     Indication: NON-SMALL CELL LUNG CANCER STAGE IV
     Dosage: DATE OF MOST RECENT DOSE PRIOR TO THE EVENT ONSET: 17/NOV/2016 OF 372 MG?DOSE PER PROTOCOL
     Route: 042
     Dates: start: 20160915
  13. PREGABALIN. [Concomitant]
     Active Substance: PREGABALIN
     Indication: CHEST PAIN
  14. CARBOPLATIN. [Suspect]
     Active Substance: CARBOPLATIN
     Indication: NON-SMALL CELL LUNG CANCER STAGE IV
     Dosage: DATE OF MOST RECENT DOSE PRIOR TO THE EVENT ONSET: 17/NOV/2016 OF 575.5 MG?AREA UNDER THE CONCENTRAT
     Route: 042
     Dates: start: 20160915
  15. ATIVAN [Concomitant]
     Active Substance: LORAZEPAM
     Route: 065
     Dates: start: 20161204, end: 20161204
  16. PREGABALIN. [Concomitant]
     Active Substance: PREGABALIN
     Indication: AXILLARY PAIN
     Route: 065
     Dates: start: 20160812
  17. PROCHLORPERAZINE. [Concomitant]
     Active Substance: PROCHLORPERAZINE
     Indication: VOMITING
  18. PHOSPHATE-NOVARTIS [Concomitant]
     Indication: HYPOPHOSPHATAEMIA
     Route: 065
     Dates: start: 20161117
  19. LASIX [Concomitant]
     Active Substance: FUROSEMIDE
     Route: 065
     Dates: start: 20161207, end: 20161207

REACTIONS (2)
  - Upper respiratory tract infection [Recovered/Resolved]
  - Pneumonia staphylococcal [Recovered/Resolved]

NARRATIVE: CASE EVENT DATE: 20161126
